FAERS Safety Report 9969778 (Version 2)
Quarter: 2014Q1

REPORT INFORMATION
  Report Type: Spontaneous
  Country: GB (occurrence: GB)
  Receive Date: 20140306
  Receipt Date: 20140306
  Transmission Date: 20141002
  Serious: Yes (Other)
  Sender: FDA-Public Use
  Company Number: GB-JNJFOC-20140201280

PATIENT
  Age: 20 Year
  Sex: Male
  Weight: 51.7 kg

DRUGS (9)
  1. DORIBAX [Suspect]
     Indication: LOWER RESPIRATORY TRACT INFECTION
     Route: 042
     Dates: start: 20140122, end: 20140130
  2. AZITHROMYCIN [Concomitant]
     Indication: CYSTIC FIBROSIS
     Dosage: (M,W,T) (SIC)
     Route: 065
     Dates: start: 20030915
  3. DORNASE ALFA [Concomitant]
     Indication: CYSTIC FIBROSIS
     Route: 065
     Dates: start: 20100910
  4. LORATADINE [Concomitant]
     Indication: CYSTIC FIBROSIS
     Route: 065
     Dates: start: 20100910
  5. PREDNISOLONE [Concomitant]
     Indication: CYSTIC FIBROSIS
     Route: 065
     Dates: start: 20100910
  6. CREON [Concomitant]
     Indication: CYSTIC FIBROSIS
     Dosage: 10000
     Route: 065
     Dates: start: 20100910
  7. VITAMINE E [Concomitant]
     Indication: CYSTIC FIBROSIS
     Dosage: 200 UNITS
     Route: 065
     Dates: start: 20100910
  8. OMEPRAZOLE [Concomitant]
     Indication: CYSTIC FIBROSIS
     Route: 065
     Dates: start: 20100910
  9. TIOTROPIUM [Concomitant]
     Indication: CYSTIC FIBROSIS
     Route: 065
     Dates: start: 20100910

REACTIONS (1)
  - Back pain [Recovered/Resolved]
